FAERS Safety Report 5425860-7 (Version None)
Quarter: 2007Q3

REPORT INFORMATION
  Report Type: 
  Country: None (occurrence: None)
  Receive Date: 20070823
  Receipt Date: 20070814
  Transmission Date: 20080115
  Serious: Yes (Hospitalization)
  Sender: FDA-Public Use
  Company Number: 236651K07USA

PATIENT
  Age: 64 Year
  Sex: Female

DRUGS (11)
  1. REBIF [Suspect]
     Indication: MULTIPLE SCLEROSIS
     Dosage: 44 MCG, 3 IN 1 WEEKS, SUBCUTANEOUS
     Route: 058
     Dates: start: 20070328
  2. COPAXONE [Suspect]
  3. ALEVE [Concomitant]
  4. LYRICA [Concomitant]
  5. ZOCOR [Concomitant]
  6. XANAX [Concomitant]
  7. TIAZAC [Concomitant]
  8. OXYBUTYNIN CHLORIDE [Concomitant]
  9. COUMADIN [Concomitant]
  10. BACLOFEN [Concomitant]
  11. AMANTADINE HCL [Concomitant]

REACTIONS (2)
  - CONDITION AGGRAVATED [None]
  - CONVULSION [None]
